FAERS Safety Report 20809339 (Version 1)
Quarter: 2022Q2

REPORT INFORMATION
  Report Type: Spontaneous
  Country: US (occurrence: None)
  Receive Date: 20220509
  Receipt Date: 20220509
  Transmission Date: 20220721
  Serious: Yes (Death)
  Sender: FDA-Public Use
  Company Number: None

PATIENT
  Age: 2 Year
  Sex: Female

DRUGS (2)
  1. THALOMID [Suspect]
     Active Substance: THALIDOMIDE
     Indication: Medulloblastoma
     Dosage: FREQUENCY : DAILY;?
     Route: 048
     Dates: start: 20220210, end: 20220419
  2. THALOMID [Suspect]
     Active Substance: THALIDOMIDE
     Indication: Nervous system disorder

REACTIONS (15)
  - Seizure [None]
  - Agonal respiration [None]
  - Dyskinesia [None]
  - Blood culture positive [None]
  - Staphylococcal infection [None]
  - Respiratory tract infection [None]
  - Pseudomonas infection [None]
  - Serratia infection [None]
  - Brain herniation [None]
  - Pain [None]
  - Abdominal distension [None]
  - Tachycardia [None]
  - Blood pressure abnormal [None]
  - Urinary retention [None]
  - Cardiac arrest [None]

NARRATIVE: CASE EVENT DATE: 20220419
